FAERS Safety Report 9287918 (Version 2)
Quarter: 2013Q3

REPORT INFORMATION
  Report Type: Spontaneous
  Country: JP (occurrence: JP)
  Receive Date: 20130514
  Receipt Date: 20130702
  Transmission Date: 20140515
  Serious: Yes (Other)
  Sender: FDA-Public Use
  Company Number: JP-SANOFI-AVENTIS-2013SA047684

PATIENT
  Age: 81 Year
  Sex: Male
  Weight: 49.9 kg

DRUGS (11)
  1. PLAVIX [Suspect]
     Indication: MYOCARDIAL INFARCTION
     Route: 048
  2. AMARYL [Suspect]
     Indication: DIABETES MELLITUS
     Route: 048
     Dates: start: 200207, end: 201107
  3. JANUVIA [Suspect]
     Indication: DIABETES MELLITUS
     Route: 048
  4. NESINA [Suspect]
     Indication: DIABETES MELLITUS
     Route: 048
  5. METFORMIN [Concomitant]
  6. ASPIRIN [Concomitant]
  7. NICORANDIL [Concomitant]
  8. TEPRENONE [Concomitant]
  9. DONEPEZIL [Concomitant]
  10. ETIZOLAM [Concomitant]
  11. CARVEDILOL [Concomitant]

REACTIONS (4)
  - Insulin autoimmune syndrome [Unknown]
  - Hunger [Unknown]
  - Tremor [Unknown]
  - Anti-insulin antibody increased [Unknown]
